FAERS Safety Report 15883020 (Version 2)
Quarter: 2019Q2

REPORT INFORMATION
  Report Type: Spontaneous
  Country: ES (occurrence: ES)
  Receive Date: 20190129
  Receipt Date: 20190527
  Transmission Date: 20190711
  Serious: Yes (Death)
  Sender: FDA-Public Use
  Company Number: ES-ROCHE-2251781

PATIENT
  Age: 65 Year
  Sex: Male

DRUGS (2)
  1. RITUXIMAB. [Suspect]
     Active Substance: RITUXIMAB
     Indication: MYASTHENIA GRAVIS
     Route: 042
  2. PYRIDOSTIGMINE [Concomitant]
     Active Substance: PYRIDOSTIGMINE
     Indication: MYASTHENIA GRAVIS
     Route: 065

REACTIONS (5)
  - Thrombocytopenia [Unknown]
  - Intentional product use issue [Unknown]
  - Septic shock [Fatal]
  - Multiple organ dysfunction syndrome [Fatal]
  - Off label use [Unknown]
